FAERS Safety Report 6322756-3 (Version None)
Quarter: 2009Q3

REPORT INFORMATION
  Report Type: 
  Country: None (occurrence: None)
  Receive Date: 20090824
  Receipt Date: 20090325
  Transmission Date: 20100115
  Serious: No
  Sender: FDA-Public Use
  Company Number: US-ABBOTT-09P-163-0561650-00

PATIENT
  Sex: Female
  Weight: 89.892 kg

DRUGS (8)
  1. NIASPAN [Suspect]
     Indication: BLOOD CHOLESTEROL INCREASED
     Route: 048
     Dates: start: 20090224, end: 20090301
  2. NIASPAN [Suspect]
     Route: 048
     Dates: start: 20090301
  3. MICARDIS [Concomitant]
     Indication: HYPERTENSION
     Route: 048
  4. ASPIRIN [Concomitant]
     Indication: CARDIOVASCULAR EVENT PROPHYLAXIS
     Route: 048
  5. LOVAZA [Concomitant]
     Indication: ROUTINE HEALTH MAINTENANCE
  6. PB8 [Concomitant]
     Indication: ROUTINE HEALTH MAINTENANCE
  7. COQ10 [Concomitant]
     Indication: ROUTINE HEALTH MAINTENANCE
  8. COMPLEX FOR HAIR, SKIN, AND NAILS [Concomitant]
     Indication: ALOPECIA

REACTIONS (2)
  - FLUSHING [None]
  - HEADACHE [None]
